FAERS Safety Report 4690132-5 (Version None)
Quarter: 2005Q2

REPORT INFORMATION
  Report Type: 
  Country: None (occurrence: None)
  Receive Date: 20050613
  Receipt Date: 20050601
  Transmission Date: 20051028
  Serious: Yes (Hospitalization)
  Sender: FDA-Public Use
  Company Number: 2005BH000051

PATIENT

DRUGS (1)
  1. PROPOFOL [Suspect]

REACTIONS (1)
  - ASPIRATION [None]
